FAERS Safety Report 9957843 (Version 1)
Quarter: 2014Q1

REPORT INFORMATION
  Report Type: Report from Study
  Country: US (occurrence: US)
  Receive Date: 20140304
  Receipt Date: 20140304
  Transmission Date: 20141002
  Serious: No
  Sender: FDA-Public Use
  Company Number: US-ABBVIE-13P-163-1092141-00

PATIENT
  Age: 28 Year
  Sex: Female

DRUGS (10)
  1. HUMIRA [Suspect]
     Indication: GRANULOMA ANNULARE
     Dates: start: 20120511
  2. ALPRAZOLAM [Concomitant]
     Indication: ANXIETY
  3. XOPENEX INHALER [Concomitant]
     Indication: ASTHMA
  4. ORTHO CYCLEN [Concomitant]
     Indication: CONTRACEPTION
  5. ZOLPIDEM [Concomitant]
     Indication: INSOMNIA
  6. MELATONIN [Concomitant]
     Indication: INSOMNIA
  7. MULTIVITAMIN [Concomitant]
     Indication: PRODUCT USED FOR UNKNOWN INDICATION
  8. FISH OIL [Concomitant]
     Indication: PRODUCT USED FOR UNKNOWN INDICATION
  9. VITAMIN D [Concomitant]
     Indication: PRODUCT USED FOR UNKNOWN INDICATION
  10. VICODEN [Concomitant]
     Indication: MIGRAINE

REACTIONS (6)
  - Unevaluable event [Not Recovered/Not Resolved]
  - Cough [Recovered/Resolved]
  - Asthma [Not Recovered/Not Resolved]
  - Blood disorder [Not Recovered/Not Resolved]
  - Unevaluable event [Unknown]
  - Off label use [Unknown]
